FAERS Safety Report 20252403 (Version 1)
Quarter: 2021Q4

REPORT INFORMATION
  Report Type: Spontaneous
  Country: US (occurrence: US)
  Receive Date: 20211229
  Receipt Date: 20211229
  Transmission Date: 20220303
  Serious: Yes (Other)
  Sender: FDA-Public Use
  Company Number: US-COOPERSURGICAL, INC.-US-2021CPS001341

PATIENT
  Age: 33 Year
  Sex: Female
  Weight: 52.154 kg

DRUGS (2)
  1. PARAGARD T 380A [Suspect]
     Active Substance: COPPER
     Indication: Contraception
     Dosage: UNK
     Route: 015
     Dates: start: 20120804, end: 20210503
  2. PARAGARD T 380A [Suspect]
     Active Substance: COPPER
     Dosage: UNK
     Route: 015
     Dates: start: 20210503

REACTIONS (5)
  - Device breakage [Recovered/Resolved]
  - Complication of device removal [Recovered/Resolved]
  - Abdominal distension [Recovered/Resolved]
  - Fungal infection [Recovered/Resolved]
  - Vaginitis gardnerella [Recovered/Resolved]

NARRATIVE: CASE EVENT DATE: 20180131
